FAERS Safety Report 4376613-2 (Version None)
Quarter: 2004Q2

REPORT INFORMATION
  Report Type: 
  Country: None (occurrence: None)
  Receive Date: 20040608
  Receipt Date: 20040527
  Transmission Date: 20050107
  Serious: Yes (Hospitalization)
  Sender: FDA-Public Use
  Company Number: DSA_60420_2004

PATIENT
  Age: 16 Year
  Sex: Female
  Weight: 55.5 kg

DRUGS (4)
  1. MIGRANAL [Suspect]
     Indication: STATUS MIGRAINOSUS
     Dosage: 4 DF ONCE IN
     Dates: start: 20040518, end: 20040518
  2. COMPAZINE [Concomitant]
  3. NAPROXEN [Concomitant]
  4. ADDERALL 10 [Concomitant]

REACTIONS (9)
  - ABNORMAL BEHAVIOUR [None]
  - CRYING [None]
  - DYSTONIA [None]
  - MEMORY IMPAIRMENT [None]
  - MUSCLE SPASMS [None]
  - MUSCLE TIGHTNESS [None]
  - MUSCULOSKELETAL STIFFNESS [None]
  - PAIN [None]
  - SCREAMING [None]
